FAERS Safety Report 13325507 (Version 1)
Quarter: 2017Q1

REPORT INFORMATION
  Report Type: Spontaneous
  Country: US (occurrence: US)
  Receive Date: 20170310
  Receipt Date: 20170310
  Transmission Date: 20170428
  Serious: No
  Sender: FDA-Public Use
  Company Number: US-PERRIGO-16US022165

PATIENT
  Age: 64 Year
  Sex: Male
  Weight: 90.7 kg

DRUGS (3)
  1. TESTOSTERONE CYPIONATE. [Suspect]
     Active Substance: TESTOSTERONE CYPIONATE
     Indication: BLOOD TESTOSTERONE DECREASED
     Dosage: 200 MG, EVERY 14 DAYS
     Route: 030
     Dates: start: 201606, end: 201608
  2. ANTIHYPERTENSIVES [Concomitant]
     Active Substance: UNSPECIFIED INGREDIENT
     Indication: HYPERTENSION
     Dosage: UNKNOWN, UNKNOWN
     Route: 048
  3. TESTOSTERONE CYPIONATE. [Suspect]
     Active Substance: TESTOSTERONE CYPIONATE
     Dosage: LESS THAN 0.5 ML, EVERY 14 DAYS
     Route: 030
     Dates: start: 20160822

REACTIONS (2)
  - Underdose [Not Recovered/Not Resolved]
  - Prostatic specific antigen increased [Recovered/Resolved]

NARRATIVE: CASE EVENT DATE: 201608
